FAERS Safety Report 9921491 (Version 2)
Quarter: 2014Q1

REPORT INFORMATION
  Report Type: Report from Study
  Country: BR (occurrence: BR)
  Receive Date: 20140225
  Receipt Date: 20140225
  Transmission Date: 20141002
  Serious: Yes (Life-Threatening, Other)
  Sender: FDA-Public Use
  Company Number: PHHY2014BR009279

PATIENT
  Age: 64 Year
  Sex: Female
  Weight: 77 kg

DRUGS (3)
  1. ACLASTA [Suspect]
     Indication: OSTEOPENIA
     Dosage: 5 MG, UNK
     Route: 042
     Dates: start: 201211
  2. LOSARTAN [Suspect]
     Indication: HYPERTENSION
     Dosage: 50 MG, QD
     Route: 048
     Dates: start: 2010, end: 201402
  3. CALCIUM + VIT.C [Suspect]
     Indication: OSTEOPENIA
     Dosage: 1 DF, UNK
     Route: 048
     Dates: start: 201211

REACTIONS (5)
  - Hypersensitivity [Recovered/Resolved]
  - Vomiting [Recovered/Resolved]
  - Dyspnoea [Recovered/Resolved]
  - Pain [Recovered/Resolved]
  - Heart rate decreased [Not Recovered/Not Resolved]
